FAERS Safety Report 24546350 (Version 1)
Quarter: 2024Q4

REPORT INFORMATION
  Report Type: Other
  Country: IN (occurrence: IN)
  Receive Date: 20241024
  Receipt Date: 20241024
  Transmission Date: 20250115
  Serious: Yes (Other)
  Sender: NUVO PHARMACEUTICALS
  Company Number: IN-Nuvo Pharmaceuticals Inc-2163291

PATIENT
  Sex: Female

DRUGS (13)
  1. NAPROXEN [Suspect]
     Active Substance: NAPROXEN
     Indication: Migraine
  2. SUMATRIPTAN [Suspect]
     Active Substance: SUMATRIPTAN
  3. IBUPROFEN [Suspect]
     Active Substance: IBUPROFEN
  4. AMITRIPTYLINE HYDROCHLORIDE [Suspect]
     Active Substance: AMITRIPTYLINE HYDROCHLORIDE
  5. DICLOFENAC SODIUM [Suspect]
     Active Substance: DICLOFENAC SODIUM
  6. PROPRANOLOL [Suspect]
     Active Substance: PROPRANOLOL HYDROCHLORIDE
  7. DOTHIEPIN [Suspect]
     Active Substance: DOTHIEPIN\DOTHIEPIN HYDROCHLORIDE
  8. VALPROATE SODIUM [Suspect]
     Active Substance: VALPROATE SODIUM
  9. ACETAMINOPHEN\TRAMADOL [Suspect]
     Active Substance: ACETAMINOPHEN\TRAMADOL
  10. NORTRIPTYLINE HYDROCHLORIDE [Suspect]
     Active Substance: NORTRIPTYLINE HYDROCHLORIDE
  11. TOPIRAMATE [Suspect]
     Active Substance: TOPIRAMATE
  12. VENLAFAXINE [Suspect]
     Active Substance: VENLAFAXINE HYDROCHLORIDE
     Dates: start: 2022
  13. FLUNARIZINE [Suspect]
     Active Substance: FLUNARIZINE

REACTIONS (2)
  - Serotonin syndrome [Recovered/Resolved]
  - Drug ineffective for unapproved indication [Unknown]
